FAERS Safety Report 8337112-6 (Version None)
Quarter: 2012Q2

REPORT INFORMATION
  Report Type: 
  Country: None (occurrence: None)
  Receive Date: 20120504
  Receipt Date: 20120428
  Transmission Date: 20120825
  Serious: Yes (Hospitalization, Other)
  Sender: FDA-Public Use
  Company Number: PHHY2012BR037206

PATIENT
  Sex: Female

DRUGS (7)
  1. METOPROLOL SUCCINATE [Concomitant]
     Dosage: UNK
  2. RASILEZ [Suspect]
  3. CLOPIDOGREL [Concomitant]
  4. ISOSORBIDE MONONITRATE [Concomitant]
  5. ASPIRIN [Concomitant]
  6. ATORVASTATIN CALCIUM [Concomitant]
  7. BRILINTA [Concomitant]

REACTIONS (2)
  - INFARCTION [None]
  - VEIN DISORDER [None]
